FAERS Safety Report 20041708 (Version 1)
Quarter: 2021Q4

REPORT INFORMATION
  Report Type: Spontaneous
  Country: IN (occurrence: IN)
  Receive Date: 20211108
  Receipt Date: 20211108
  Transmission Date: 20220304
  Serious: Yes (Hospitalization, Other)
  Sender: FDA-Public Use
  Company Number: None

PATIENT
  Age: 32 Year
  Sex: Female

DRUGS (4)
  1. PREDNISOLONE [Suspect]
     Active Substance: PREDNISOLONE
     Indication: Pemphigus
     Dosage: 40 MILLIGRAM
     Route: 048
  2. CYCLOPHOSPHAMIDE [Suspect]
     Active Substance: CYCLOPHOSPHAMIDE
     Indication: Pemphigus
     Dosage: 200 MILLIGRAM
     Route: 065
  3. CYCLOPHOSPHAMIDE [Suspect]
     Active Substance: CYCLOPHOSPHAMIDE
     Dosage: UNK
     Route: 065
  4. TRIAMCINOLONE ACETONIDE [Suspect]
     Active Substance: TRIAMCINOLONE ACETONIDE
     Indication: Optic neuritis
     Dosage: 40 MILLIGRAM

REACTIONS (9)
  - Retinal haemorrhage [Recovered/Resolved]
  - Necrotising retinitis [Recovered/Resolved]
  - Optic neuritis [Recovered/Resolved]
  - Condition aggravated [Recovered/Resolved]
  - Optic atrophy [Unknown]
  - Retinal occlusive vasculitis [Recovered/Resolved]
  - Retinitis [Recovered/Resolved]
  - Ophthalmic herpes simplex [Recovered/Resolved]
  - Cytomegalovirus chorioretinitis [Recovered/Resolved]
